FAERS Safety Report 16775818 (Version 2)
Quarter: 2019Q3

REPORT INFORMATION
  Report Type: Spontaneous
  Country: CN (occurrence: CN)
  Receive Date: 20190905
  Receipt Date: 20190909
  Transmission Date: 20191005
  Serious: Yes (Hospitalization)
  Sender: FDA-Public Use
  Company Number: CN-PFIZER INC-2019378373

PATIENT
  Age: 39 Year
  Sex: Female
  Weight: 58 kg

DRUGS (4)
  1. ZOLADEX [Concomitant]
     Active Substance: GOSERELIN ACETATE
     Indication: HORMONE THERAPY
     Dosage: 3.600 MG, 1X/DAY
     Route: 058
     Dates: start: 20190806, end: 20190806
  2. ENDOXAN [CYCLOPHOSPHAMIDE] [Suspect]
     Active Substance: CYCLOPHOSPHAMIDE
     Dosage: 0.9 G, 1X/DAY
     Route: 041
     Dates: start: 20190806, end: 20190806
  3. PHARMORUBICIN [Suspect]
     Active Substance: EPIRUBICIN
     Dosage: 140 MG, 1X/DAY
     Route: 041
     Dates: start: 20190806, end: 20190806
  4. AO NUO XIAN [Suspect]
     Active Substance: DEXRAZOXANE
     Indication: CARDIOTOXICITY
     Dosage: 1250 MG, 1X/DAY
     Route: 041
     Dates: start: 20190806, end: 20190806

REACTIONS (3)
  - Aspartate aminotransferase increased [Unknown]
  - Hepatic enzyme increased [Unknown]
  - Alanine aminotransferase increased [Unknown]

NARRATIVE: CASE EVENT DATE: 20190826
